FAERS Safety Report 8118330-9 (Version None)
Quarter: 2012Q1

REPORT INFORMATION
  Report Type: 
  Country: None (occurrence: None)
  Receive Date: 20120207
  Receipt Date: 20120131
  Transmission Date: 20120608
  Serious: Yes (Hospitalization, Other)
  Sender: FDA-Public Use
  Company Number: FR-PFIZER INC-2012018917

PATIENT
  Age: 42 Year
  Sex: Female
  Weight: 57 kg

DRUGS (5)
  1. KEPPRA [Concomitant]
     Dosage: 2 DF, 2X/DAY
     Route: 048
     Dates: start: 20110101
  2. PREDNISOLONE [Concomitant]
     Dosage: 2 DF, 1X/DAY
     Route: 048
     Dates: start: 20110101
  3. POTASSIUM CHLORIDE [Concomitant]
     Dosage: 1 DF, ALTERNATE DAY
     Route: 048
     Dates: start: 20110101
  4. XALKORI [Suspect]
     Indication: LUNG CARCINOMA CELL TYPE UNSPECIFIED STAGE IV
     Dosage: 250 MG, 2X/DAY
     Dates: start: 20110913, end: 20120120
  5. LEXOMIL [Concomitant]
     Dosage: IF NEEDED
     Route: 048
     Dates: start: 20110101

REACTIONS (3)
  - BRADYCARDIA [None]
  - CYTOLYTIC HEPATITIS [None]
  - PLEURISY [None]
